FAERS Safety Report 8184522-6 (Version None)
Quarter: 2012Q1

REPORT INFORMATION
  Report Type: 
  Country: None (occurrence: None)
  Receive Date: 20120305
  Receipt Date: 20120229
  Transmission Date: 20120608
  Serious: Yes (Other)
  Sender: FDA-Public Use
  Company Number: US-PFIZER INC-2012054505

PATIENT
  Sex: Female
  Weight: 56.236 kg

DRUGS (8)
  1. GABAPENTIN [Suspect]
     Indication: FIBROMYALGIA
     Dosage: 300 MG, 3X/DAY
     Dates: start: 20120101
  2. FLEXERIL [Suspect]
     Indication: MUSCLE RELAXANT THERAPY
     Dosage: 10 MG, DAILY
     Route: 048
     Dates: start: 20111201
  3. GABAPENTIN [Suspect]
     Dosage: 300 MG, DAILY
     Dates: end: 20120228
  4. FLEXERIL [Suspect]
     Indication: SLEEP DISORDER
  5. AMITRIPTYLINE HCL [Suspect]
     Indication: FIBROMYALGIA
     Dosage: 10 MG, 1X/DAY
     Dates: start: 20120220
  6. ATIVAN [Concomitant]
     Indication: ANXIETY
     Dosage: 1 MG, DAILY
  7. LYRICA [Suspect]
     Indication: FIBROMYALGIA
     Dosage: 150 MG, 2X/DAY
     Route: 048
     Dates: start: 20111201, end: 20120101
  8. AMITRIPTYLINE HCL [Suspect]
     Dosage: 40 MG, 1X/DAY
     Dates: end: 20120228

REACTIONS (13)
  - MALAISE [None]
  - DRUG ADMINISTRATION ERROR [None]
  - PANIC ATTACK [None]
  - GASTROENTERITIS VIRAL [None]
  - PARANOIA [None]
  - HYPERSOMNIA [None]
  - DRUG INEFFECTIVE [None]
  - PALPITATIONS [None]
  - THINKING ABNORMAL [None]
  - NERVOUSNESS [None]
  - INSOMNIA [None]
  - APPETITE DISORDER [None]
  - NAUSEA [None]
